FAERS Safety Report 9315111 (Version 2)
Quarter: 2013Q2

REPORT INFORMATION
  Report Type: Spontaneous
  Country: US (occurrence: US)
  Receive Date: 20130529
  Receipt Date: 20130529
  Transmission Date: 20140414
  Serious: No
  Sender: FDA-Public Use
  Company Number: US-MYLANLABS-2012S1024069

PATIENT
  Age: 41 Year
  Sex: Female

DRUGS (5)
  1. BUPROPION HYDROCHLORIDE TABLETS [Suspect]
     Indication: BIPOLAR DISORDER
     Route: 048
     Dates: start: 2011
  2. BUPROPION HYDROCHLORIDE TABLETS [Suspect]
     Indication: OFF LABEL USE
     Route: 048
     Dates: start: 2011
  3. BUPROPION HYDROCHLORIDE TABLETS [Suspect]
     Indication: OFF LABEL USE
     Route: 048
     Dates: start: 2011
  4. ABILIFY [Concomitant]
     Indication: BIPOLAR DISORDER
  5. SEROQUEL [Concomitant]
     Indication: BIPOLAR DISORDER
     Dates: start: 201205

REACTIONS (4)
  - Euphoric mood [Recovered/Resolved]
  - Visual field defect [Recovered/Resolved]
  - Tremor [Recovered/Resolved]
  - Abdominal discomfort [Recovered/Resolved]
